FAERS Safety Report 15629541 (Version 2)
Quarter: 2018Q4

REPORT INFORMATION
  Report Type: Spontaneous
  Country: US (occurrence: US)
  Receive Date: 20181117
  Receipt Date: 20181222
  Transmission Date: 20190205
  Serious: No
  Sender: FDA-Public Use
  Company Number: US-009507513-1811USA001690

PATIENT
  Age: 16 Year
  Sex: Female
  Weight: 115.19 kg

DRUGS (1)
  1. NEXPLANON [Suspect]
     Active Substance: ETONOGESTREL
     Indication: CONTRACEPTION
     Dosage: ONE IMPLANT (68 MG) FOR 3 YEARS
     Route: 059
     Dates: start: 20180521, end: 20181102

REACTIONS (6)
  - Device deployment issue [Unknown]
  - Device breakage [Recovered/Resolved]
  - Fatigue [Recovered/Resolved]
  - Device kink [Recovered/Resolved]
  - Weight increased [Recovered/Resolved]
  - Mood altered [Recovered/Resolved]

NARRATIVE: CASE EVENT DATE: 2018
